FAERS Safety Report 12197613 (Version 1)
Quarter: 2016Q1

REPORT INFORMATION
  Report Type: Spontaneous
  Country: CA (occurrence: CA)
  Receive Date: 20160322
  Receipt Date: 20160322
  Transmission Date: 20160526
  Serious: Yes (Death)
  Sender: FDA-Public Use
  Company Number: CA-BEH-2016060373

PATIENT
  Age: 29 Year
  Sex: Female

DRUGS (2)
  1. INTRAVENOUS IMMUNOGLOBULIN [Suspect]
     Active Substance: HUMAN IMMUNOGLOBULIN G
     Indication: ENCEPHALITIS AUTOIMMUNE
  2. METHYLPREDNISOLONE. [Concomitant]
     Active Substance: METHYLPREDNISOLONE
     Route: 042

REACTIONS (2)
  - Exposure during pregnancy [Unknown]
  - Drug ineffective for unapproved indication [Fatal]
